FAERS Safety Report 25743465 (Version 1)
Quarter: 2025Q3

REPORT INFORMATION
  Report Type: Spontaneous
  Country: CN (occurrence: CN)
  Receive Date: 20250831
  Receipt Date: 20250831
  Transmission Date: 20251020
  Serious: Yes (Other)
  Sender: ALEXION PHARMACEUTICALS
  Company Number: None

PATIENT
  Age: 51 Year
  Sex: Female
  Weight: 60 kg

DRUGS (1)
  1. SYMBICORT [Suspect]
     Active Substance: BUDESONIDE\FORMOTEROL FUMARATE DIHYDRATE
     Indication: Asthma
     Dates: start: 20250820, end: 20250821

REACTIONS (6)
  - Anxiety [Recovering/Resolving]
  - Insomnia [Recovering/Resolving]
  - Palpitations [Recovering/Resolving]
  - Dry mouth [Recovering/Resolving]
  - Dizziness [Recovering/Resolving]
  - Headache [Recovering/Resolving]

NARRATIVE: CASE EVENT DATE: 20250820
